FAERS Safety Report 4476687-4 (Version None)
Quarter: 2004Q4

REPORT INFORMATION
  Report Type: 
  Country: None (occurrence: None)
  Receive Date: 20041015
  Receipt Date: 20041015
  Transmission Date: 20050328
  Serious: Yes (Hospitalization)
  Sender: FDA-Public Use
  Company Number: None

PATIENT
  Age: 78 Year
  Sex: Female

DRUGS (7)
  1. TIOTROPIUM 18 MCG/CAP PFIZER [Suspect]
     Dosage: 1 PUFF DAILY OTHER
     Route: 050
     Dates: start: 20040806, end: 20040806
  2. ESCITALOPRAM OXALATE [Concomitant]
  3. METOPROLOL TARTRATE [Concomitant]
  4. NIACIN [Concomitant]
  5. MULTI-VITAMIN [Concomitant]
  6. CALCIUM [Concomitant]
  7. OLMESARTAN [Concomitant]

REACTIONS (3)
  - ERYTHEMA [None]
  - PRURITUS [None]
  - SKIN WARM [None]
